FAERS Safety Report 6829509-8 (Version None)
Quarter: 2010Q3

REPORT INFORMATION
  Report Type: 
  Country: None (occurrence: None)
  Receive Date: 20100709
  Receipt Date: 20070512
  Transmission Date: 20110219
  Serious: No
  Sender: FDA-Public Use
  Company Number: US-PFIZER INC-2007010706

PATIENT
  Sex: Female
  Weight: 63.5 kg

DRUGS (4)
  1. CHANTIX [Suspect]
     Indication: SMOKING CESSATION THERAPY
     Dates: start: 20070205
  2. HYZAAR [Concomitant]
     Indication: HYPERTENSION
  3. ONE-A-DAY [Concomitant]
  4. TRAVATAN [Concomitant]
     Indication: GLAUCOMA

REACTIONS (2)
  - ENERGY INCREASED [None]
  - WEIGHT INCREASED [None]
